FAERS Safety Report 23654437 (Version 1)
Quarter: 2024Q1

REPORT INFORMATION
  Report Type: Spontaneous
  Country: FR (occurrence: FR)
  Receive Date: 20240320
  Receipt Date: 20240320
  Transmission Date: 20240409
  Serious: Yes (Other)
  Sender: FDA-Public Use
  Company Number: None

PATIENT
  Age: 44 Year
  Sex: Female
  Weight: 58 kg

DRUGS (11)
  1. ELEXACAFTOR\IVACAFTOR\TEZACAFTOR [Suspect]
     Active Substance: ELEXACAFTOR\IVACAFTOR\TEZACAFTOR
     Indication: Cystic fibrosis
     Dosage: 2 DOSAGE FORM, QD (75 MG/50 MG/100 MG)
     Route: 048
     Dates: start: 20240116, end: 20240131
  2. KALYDECO [Suspect]
     Active Substance: IVACAFTOR
     Indication: Cystic fibrosis
     Dosage: 150 MILLIGRAM, QD
     Route: 048
     Dates: start: 20240116, end: 20240131
  3. STEROGYL [Concomitant]
     Active Substance: ERGOCALCIFEROL
  4. COLISTIMETHATE SODIUM [Concomitant]
     Active Substance: COLISTIMETHATE SODIUM
     Dosage: 1662500 IU
  5. TOBI [Concomitant]
     Active Substance: TOBRAMYCIN
     Dosage: 28 MG
  6. URSODIOL [Concomitant]
     Active Substance: URSODIOL
     Dosage: 200 MG
  7. MUCOMYST [Concomitant]
     Active Substance: ACETYLCYSTEINE
  8. AZITHROMYCIN [Concomitant]
     Active Substance: AZITHROMYCIN
  9. VITAMIN E [Concomitant]
     Active Substance: .ALPHA.-TOCOPHEROL
  10. UVESTEROL VITAMINE A D E C [Concomitant]
  11. PANCRELIPASE [Concomitant]
     Active Substance: PANCRELIPASE

REACTIONS (2)
  - Rash maculo-papular [Recovered/Resolved]
  - Purpura [Recovered/Resolved]

NARRATIVE: CASE EVENT DATE: 20240129
